FAERS Safety Report 11392568 (Version 1)
Quarter: 2015Q3

REPORT INFORMATION
  Report Type: Spontaneous
  Country: CA (occurrence: CA)
  Receive Date: 20150818
  Receipt Date: 20150818
  Transmission Date: 20151125
  Serious: Yes (Other)
  Sender: FDA-Public Use
  Company Number: CA-BAYER-2014-158865

PATIENT
  Age: 27 Year
  Sex: Female
  Weight: 74 kg

DRUGS (1)
  1. JAYDESS [Suspect]
     Active Substance: LEVONORGESTREL
     Indication: CONTRACEPTION
     Dosage: 14 MCG/24HR, CONT
     Route: 015
     Dates: start: 201406

REACTIONS (5)
  - Medication error [None]
  - Maternal exposure during pregnancy [Not Recovered/Not Resolved]
  - Uterine perforation [None]
  - Caesarean section [None]
  - Device dislocation [None]

NARRATIVE: CASE EVENT DATE: 2014
